FAERS Safety Report 5181778-9 (Version None)
Quarter: 2006Q4

REPORT INFORMATION
  Report Type: 
  Country: None (occurrence: None)
  Receive Date: 20061220
  Receipt Date: 20061212
  Transmission Date: 20070319
  Serious: Yes (Life-Threatening)
  Sender: FDA-Public Use
  Company Number: AU-JNJFOC-20061203230

PATIENT
  Sex: Male

DRUGS (4)
  1. REMINYL [Suspect]
     Indication: DRUG USE FOR UNKNOWN INDICATION
     Route: 048
  2. ASPIRIN [Concomitant]
  3. ATACAND HCT [Concomitant]
     Dosage: 16/12.5
  4. ADALAT [Concomitant]

REACTIONS (2)
  - CHEST PAIN [None]
  - RASH GENERALISED [None]
